FAERS Safety Report 4291247-6 (Version None)
Quarter: 2004Q1

REPORT INFORMATION
  Report Type: 
  Country: None (occurrence: None)
  Receive Date: 20040211
  Receipt Date: 20031120
  Transmission Date: 20041129
  Serious: No
  Sender: FDA-Public Use
  Company Number: US-GLAXOSMITHKLINE-A0440564A

PATIENT
  Sex: Female

DRUGS (3)
  1. PAXIL [Suspect]
     Indication: DEPRESSION
     Dosage: 20MG PER DAY
     Route: 048
     Dates: start: 20020101
  2. PAXIL CR [Suspect]
     Route: 048
  3. PROZAC [Suspect]
     Route: 065

REACTIONS (3)
  - CONTUSION [None]
  - DRUG INEFFECTIVE [None]
  - HYPERHIDROSIS [None]
